FAERS Safety Report 24018925 (Version 1)
Quarter: 2024Q2

REPORT INFORMATION
  Report Type: Spontaneous
  Country: JP (occurrence: JP)
  Receive Date: 20240627
  Receipt Date: 20240627
  Transmission Date: 20240716
  Serious: Yes (Hospitalization)
  Sender: FDA-Public Use
  Company Number: JP-VIATRISJAPAN-2024M1056155AA

PATIENT
  Age: 81 Year
  Sex: Female

DRUGS (1)
  1. SOLANAX [Suspect]
     Active Substance: ALPRAZOLAM
     Indication: Mental disorder
     Route: 048

REACTIONS (3)
  - Chills [Unknown]
  - Tremor [Unknown]
  - Palpitations [Unknown]
